FAERS Safety Report 19587982 (Version 1)
Quarter: 2021Q3

REPORT INFORMATION
  Report Type: Spontaneous
  Country: US (occurrence: US)
  Receive Date: 20210721
  Receipt Date: 20210721
  Transmission Date: 20211014
  Serious: Yes (Hospitalization)
  Sender: FDA-Public Use
  Company Number: US-BAYER-2021-179113

PATIENT
  Age: 75 Year
  Sex: Female

DRUGS (2)
  1. ACETYLSALICYLIC ACID [Suspect]
     Active Substance: ASPIRIN
     Dosage: UNK
  2. HEPARIN [Interacting]
     Active Substance: HEPARIN SODIUM

REACTIONS (6)
  - Haematoma [None]
  - Compartment syndrome [None]
  - Haemorrhage [None]
  - Blood loss anaemia [None]
  - Labelled drug-drug interaction medication error [None]
  - Contusion [None]
